FAERS Safety Report 10286043 (Version 1)
Quarter: 2014Q3

REPORT INFORMATION
  Report Type: Spontaneous
  Country: US (occurrence: None)
  Receive Date: 20140703
  Receipt Date: 20140703
  Transmission Date: 20150326
  Serious: Yes (Other)
  Sender: FDA-Public Use
  Company Number: US-H14001-14-00153

PATIENT
  Age: 58 Year
  Sex: Male

DRUGS (5)
  1. SERTRALINE [Suspect]
     Active Substance: SERTRALINE HYDROCHLORIDE
     Indication: ANTIDEPRESSANT THERAPY
  2. TRAMADOL (TRAMADOL) (TRAMADOL) [Concomitant]
     Active Substance: TRAMADOL
  3. FENTANYL (FENTANYL) (FENTANYL) [Suspect]
     Active Substance: FENTANYL
     Indication: SEDATIVE THERAPY
     Dosage: 75-150MCG/HOUR, INTRAVENEOUS DRIP
     Route: 041
  4. ATRACURIUM (ATRACURIUM) (ATRACURIUM) [Concomitant]
  5. MIDAZOLAM [Concomitant]
     Active Substance: MIDAZOLAM\MIDAZOLAM HYDROCHLORIDE

REACTIONS (6)
  - Cardiac arrest [None]
  - Loss of consciousness [None]
  - Coma [None]
  - Coronary artery occlusion [None]
  - Serotonin syndrome [None]
  - Ventricular fibrillation [None]
